FAERS Safety Report 19457928 (Version 1)
Quarter: 2021Q2

REPORT INFORMATION
  Report Type: Spontaneous
  Country: US (occurrence: US)
  Receive Date: 20210624
  Receipt Date: 20210624
  Transmission Date: 20210717
  Serious: Yes (Hospitalization, Other)
  Sender: FDA-Public Use
  Company Number: US-ALVOGEN-2021-ALVOGEN-117116

PATIENT
  Age: 59 Year
  Sex: Male

DRUGS (2)
  1. RIVAROXABAN [Concomitant]
     Active Substance: RIVAROXABAN
     Indication: ANTICOAGULANT THERAPY
  2. FLECAINIDE [Suspect]
     Active Substance: FLECAINIDE
     Indication: SINUS RHYTHM
     Dosage: AFTER THE SECOND ELECTRICAL CARDIOVERSION, HE HAD BEGUN TAKING 100 MG OF FLECAINIDE TWICE DAILY.

REACTIONS (5)
  - Ventricular fibrillation [Recovered/Resolved]
  - Bundle branch block left [Recovered/Resolved]
  - Electrocardiogram QRS complex prolonged [Recovered/Resolved]
  - Atrial flutter [Recovered/Resolved]
  - Respiratory distress [Recovered/Resolved]

NARRATIVE: CASE EVENT DATE: 201902
